FAERS Safety Report 15738756 (Version 1)
Quarter: 2018Q4

REPORT INFORMATION
  Report Type: Spontaneous
  Country: US (occurrence: US)
  Receive Date: 20181219
  Receipt Date: 20181219
  Transmission Date: 20190205
  Serious: No
  Sender: FDA-Public Use
  Company Number: US-PFIZER INC-2018514174

PATIENT

DRUGS (1)
  1. PRAZOSIN HCL [Suspect]
     Active Substance: PRAZOSIN HYDROCHLORIDE
     Dosage: UNK

REACTIONS (2)
  - Product use complaint [Unknown]
  - Dysphagia [Unknown]
